FAERS Safety Report 24526630 (Version 1)
Quarter: 2024Q4

REPORT INFORMATION
  Report Type: Report from Study
  Country: AR (occurrence: AR)
  Receive Date: 20241021
  Receipt Date: 20241021
  Transmission Date: 20250114
  Serious: No
  Sender: ROCHE
  Company Number: AR-ROCHE-3403669

PATIENT
  Age: 81 Year
  Sex: Female

DRUGS (1)
  1. ZELBORAF [Suspect]
     Active Substance: VEMURAFENIB
     Indication: Malignant melanoma
     Dosage: 4 TABLETS, THE TREATMENT WAS RESUMED ON 26/AUG/2023
     Route: 065
     Dates: start: 20220906

REACTIONS (1)
  - Thrombosis [Recovered/Resolved]
